FAERS Safety Report 6651712-0 (Version None)
Quarter: 2010Q1

REPORT INFORMATION
  Report Type: 
  Country: None (occurrence: None)
  Receive Date: 20100325
  Receipt Date: 20100317
  Transmission Date: 20100710
  Serious: Yes (Hospitalization, Other)
  Sender: FDA-Public Use
  Company Number: IT-BRISTOL-MYERS SQUIBB COMPANY-14871263

PATIENT
  Age: 60 Year
  Sex: Female

DRUGS (4)
  1. COUMADIN [Suspect]
     Indication: INTERNATIONAL NORMALISED RATIO ABNORMAL
     Dosage: INTERRUPTED ON 07NOV09 AS NECESSARY TO KEEP INR AT 2.5
     Dates: start: 19830502
  2. METFORMIN HCL [Interacting]
     Indication: TYPE 2 DIABETES MELLITUS
     Dosage: DOSE REGIMEN: 1 TAB,1/2TAB,1 TAB PER DAY.
  3. FLU VACCINE [Interacting]
     Route: 030
     Dates: start: 20091107
  4. GLICLAZIDE [Concomitant]
     Dosage: 1 TAB BEFORE MEALS.

REACTIONS (4)
  - CEREBROVASCULAR ACCIDENT [None]
  - DRUG INTERACTION [None]
  - FALL [None]
  - INTERNATIONAL NORMALISED RATIO DECREASED [None]
